FAERS Safety Report 16398230 (Version 2)
Quarter: 2019Q3

REPORT INFORMATION
  Report Type: Spontaneous
  Country: US (occurrence: US)
  Receive Date: 20190606
  Receipt Date: 20190801
  Transmission Date: 20191004
  Serious: No
  Sender: FDA-Public Use
  Company Number: US-LEO PHARMA-319067

PATIENT
  Sex: Female

DRUGS (1)
  1. PICATO [Suspect]
     Active Substance: INGENOL MEBUTATE
     Indication: ACTINIC KERATOSIS
     Route: 061
     Dates: start: 20190526, end: 20190728

REACTIONS (3)
  - Swelling face [Recovered/Resolved]
  - Application site erythema [Recovering/Resolving]
  - Application site pain [Recovered/Resolved]
